FAERS Safety Report 9655258 (Version 1)
Quarter: 2013Q4

REPORT INFORMATION
  Report Type: Spontaneous
  Country: US (occurrence: US)
  Receive Date: 20131029
  Receipt Date: 20131029
  Transmission Date: 20140711
  Serious: Yes (Hospitalization, Other)
  Sender: FDA-Public Use
  Company Number: US-NAPPMUNDI-USA-2012-0087243

PATIENT
  Sex: Female

DRUGS (3)
  1. OXYCONTIN (NDA 22-272) [Suspect]
     Indication: PRODUCT USED FOR UNKNOWN INDICATION
     Dosage: 80 MG, Q12H
     Dates: start: 2010
  2. PERCOCET /00867901/ [Suspect]
     Indication: BREAKTHROUGH PAIN
  3. COCAINE [Suspect]
     Indication: DRUG ABUSE

REACTIONS (2)
  - Substance abuse [Unknown]
  - Convulsion [Unknown]
